FAERS Safety Report 16986282 (Version 1)
Quarter: 2019Q4

REPORT INFORMATION
  Report Type: Spontaneous
  Country: US (occurrence: US)
  Receive Date: 20190918
  Receipt Date: 20190918
  Transmission Date: 20200122
  Serious: No
  Sender: FDA-Public Use
  Company Number: None

PATIENT
  Sex: Male

DRUGS (1)
  1. CAPECITABINE 500 MG NOVADOZ PHARMACEUTICALS [Suspect]
     Active Substance: CAPECITABINE
     Indication: APPENDIX CANCER
     Dosage: ?          OTHER FREQUENCY:5 TAB TWICE DAILY;?
     Route: 048
     Dates: start: 20190802

REACTIONS (4)
  - Pain [None]
  - Dehydration [None]
  - Diarrhoea [None]
  - Rectal haemorrhage [None]
